FAERS Safety Report 24330087 (Version 1)
Quarter: 2024Q3

REPORT INFORMATION
  Report Type: Report from Study
  Country: US (occurrence: None)
  Receive Date: 20240917
  Receipt Date: 20240917
  Transmission Date: 20241017
  Serious: Yes (Other)
  Sender: ASTRAZENECA
  Company Number: 2024A210454

PATIENT
  Sex: Female

DRUGS (1)
  1. TAGRISSO [Suspect]
     Active Substance: OSIMERTINIB
     Route: 048
     Dates: end: 20240712

REACTIONS (6)
  - Neoplasm malignant [Unknown]
  - Gene mutation [Unknown]
  - Drug ineffective [Unknown]
  - Dyspnoea [Unknown]
  - Weight decreased [Unknown]
  - Lung disorder [Unknown]
